FAERS Safety Report 12722196 (Version 2)
Quarter: 2018Q3

REPORT INFORMATION
  Report Type: Report from Study
  Country: AU (occurrence: AU)
  Receive Date: 20160907
  Receipt Date: 20180827
  Transmission Date: 20181010
  Serious: Yes (Death, Other)
  Sender: FDA-Public Use
  Company Number: AU-PFIZER INC-2011108223

PATIENT
  Age: 21 Year
  Sex: Male

DRUGS (10)
  1. FLUOXETINE [Suspect]
     Active Substance: FLUOXETINE HYDROCHLORIDE
     Dosage: UNK
  2. METHAMPHETAMINE [Interacting]
     Active Substance: METHAMPHETAMINE
     Dosage: UNK
  3. AMFETAMINE SULFATE [Interacting]
     Active Substance: AMPHETAMINE SULFATE
     Dosage: UNK
  4. METHYLENEDIOXYMETHAMPHETAMINE [Interacting]
     Active Substance: MIDOMAFETAMINE
     Dosage: UNK
  5. MORPHINE SULFATE. [Suspect]
     Active Substance: MORPHINE SULFATE
     Dosage: UNK
  6. TEMAZEPAM. [Interacting]
     Active Substance: TEMAZEPAM
     Dosage: UNK
  7. DIAZEPAM. [Interacting]
     Active Substance: DIAZEPAM
     Dosage: UNK
  8. KETAMINE HCL [Interacting]
     Active Substance: KETAMINE HYDROCHLORIDE
     Dosage: UNK
  9. SERTRALINE HCL [Interacting]
     Active Substance: SERTRALINE HYDROCHLORIDE
     Dosage: UNK
  10. CODEINE [Interacting]
     Active Substance: CODEINE
     Dosage: UNK

REACTIONS (3)
  - Toxicity to various agents [Fatal]
  - Drug interaction [Unknown]
  - Pulmonary oedema [Unknown]
